FAERS Safety Report 4422770-9 (Version None)
Quarter: 2004Q3

REPORT INFORMATION
  Report Type: 
  Country: None (occurrence: None)
  Receive Date: 20040713
  Receipt Date: 20030627
  Transmission Date: 20050211
  Serious: No
  Sender: FDA-Public Use
  Company Number: PHEH2003US05449

PATIENT
  Age: 60 Year
  Sex: Female

DRUGS (4)
  1. ELIDEL [Suspect]
     Indication: ECZEMA
     Dosage: BID, TOPICAL
     Route: 061
     Dates: start: 20030626
  2. PROCRIT [Concomitant]
  3. ADVAIR (SALMETEROL XINAFOLATE) [Concomitant]
  4. NASONEX [Concomitant]

REACTIONS (1)
  - DYSGEUSIA [None]
